FAERS Safety Report 6593162-1 (Version None)
Quarter: 2010Q1

REPORT INFORMATION
  Report Type: 
  Country: None (occurrence: None)
  Receive Date: 20100222
  Receipt Date: 20100210
  Transmission Date: 20100710
  Serious: Yes (Other)
  Sender: FDA-Public Use
  Company Number: PHHY2010BE07996

PATIENT
  Sex: Male

DRUGS (1)
  1. LAMISIL [Suspect]
     Indication: ONYCHOMYCOSIS
     Dosage: 250 MG PER DAY
     Route: 048

REACTIONS (11)
  - ANGIOEDEMA [None]
  - FACE OEDEMA [None]
  - HYPERHIDROSIS [None]
  - HYPOTENSION [None]
  - LOCALISED OEDEMA [None]
  - MALAISE [None]
  - PHARYNGEAL OEDEMA [None]
  - PRURITUS [None]
  - SUFFOCATION FEELING [None]
  - SYNCOPE [None]
  - URTICARIA [None]
